FAERS Safety Report 9272841 (Version 3)
Quarter: 2014Q2

REPORT INFORMATION
  Report Type: Spontaneous
  Country: IT (occurrence: IT)
  Receive Date: 20130506
  Receipt Date: 20140407
  Transmission Date: 20141212
  Serious: Yes (Other)
  Sender: FDA-Public Use
  Company Number: IT-BRISTOL-MYERS SQUIBB COMPANY-18842856

PATIENT
  Age: 66 Year
  Sex: Male

DRUGS (2)
  1. COUMADIN TABS 5 MG [Suspect]
     Indication: ATRIAL FIBRILLATION
     Route: 048
     Dates: start: 20130401, end: 20130422
  2. METOPROLOL TARTRATE [Concomitant]
     Route: 048

REACTIONS (3)
  - Myocardial ischaemia [Unknown]
  - Bladder dysplasia [Unknown]
  - Haematuria [Recovered/Resolved]
